FAERS Safety Report 17028369 (Version 1)
Quarter: 2019Q4

REPORT INFORMATION
  Report Type: Spontaneous
  Country: US (occurrence: US)
  Receive Date: 20191010
  Receipt Date: 20191010
  Transmission Date: 20200122
  Serious: Yes (Hospitalization)
  Sender: FDA-Public Use
  Company Number: None

PATIENT
  Age: 55 Year
  Sex: Female

DRUGS (2)
  1. PROMACTA [Suspect]
     Active Substance: ELTROMBOPAG OLAMINE
     Indication: ANAEMIA OF CHRONIC DISEASE
     Route: 048
     Dates: start: 20190926
  2. PROMACTA [Suspect]
     Active Substance: ELTROMBOPAG OLAMINE
     Indication: NEPHROGENIC ANAEMIA
     Route: 048
     Dates: start: 20190926

REACTIONS (1)
  - Mental status changes [None]

NARRATIVE: CASE EVENT DATE: 20191004
